FAERS Safety Report 8740611 (Version 2)
Quarter: 2012Q4

REPORT INFORMATION
  Report Type: 
  Country: US (occurrence: US)
  Receive Date: 20120823
  Receipt Date: 20121008
  Transmission Date: 20130627
  Serious: No
  Sender: FDA-Public Use
  Company Number: US-PFIZER INC-2012204151

PATIENT
  Age: 16 Year
  Sex: Male
  Weight: 69.84 kg

DRUGS (9)
  1. GENOTROPIN [Suspect]
     Indication: GROWTH HORMONE DEFICIENCY
     Dosage: 2.4 mg, 1x/day
     Route: 058
     Dates: start: 20120713
  2. MELOXICAM [Concomitant]
     Indication: SPONDYLITIS
     Dosage: UNK, 2x/day
  3. MELOXICAM [Concomitant]
     Indication: PAIN
     Dosage: 7.5 mg, daily
  4. METHOTREXATE [Concomitant]
     Indication: SPONDYLITIS
     Dosage: 12.5 mg, weekly
     Dates: start: 201107
  5. METHOTREXATE [Concomitant]
     Indication: SPONDYLOARTHROPATHY
  6. ZYRTEC [Concomitant]
     Indication: HYPERSENSITIVITY
     Dosage: 10 mg, daily
  7. VITAMIN D [Concomitant]
     Indication: BONE DENSITY ABNORMAL
     Dosage: UNK, 1x/day
  8. CALCIUM [Concomitant]
     Indication: BONE DENSITY ABNORMAL
     Dosage: UNK, 2x/day
  9. RHINOCORT [Concomitant]
     Dosage: UNK
     Route: 045

REACTIONS (1)
  - Headache [Recovered/Resolved]
